FAERS Safety Report 19557924 (Version 4)
Quarter: 2024Q4

REPORT INFORMATION
  Report Type: Spontaneous
  Country: US (occurrence: US)
  Receive Date: 20210714
  Receipt Date: 20241022
  Transmission Date: 20250115
  Serious: Yes (Other)
  Sender: GILEAD
  Company Number: US-GILEAD-2021-0539887

PATIENT
  Age: 49 Year
  Sex: Male
  Weight: 120.18 kg

DRUGS (24)
  1. ATRIPLA [Suspect]
     Active Substance: EFAVIRENZ\EMTRICITABINE\TENOFOVIR DISOPROXIL FUMARATE
     Indication: HIV infection
     Dosage: UNK
     Route: 048
     Dates: start: 19980101, end: 20201231
  2. ATRIPLA [Suspect]
     Active Substance: EFAVIRENZ\EMTRICITABINE\TENOFOVIR DISOPROXIL FUMARATE
     Dosage: UNK
     Route: 048
     Dates: start: 20060801, end: 20201231
  3. TRUVADA [Suspect]
     Active Substance: EMTRICITABINE\TENOFOVIR DISOPROXIL FUMARATE
     Indication: HIV infection
     Dosage: UNK
     Route: 048
     Dates: start: 19980101, end: 20201231
  4. TRUVADA [Suspect]
     Active Substance: EMTRICITABINE\TENOFOVIR DISOPROXIL FUMARATE
     Dosage: UNK
     Route: 048
     Dates: start: 20040901, end: 20201231
  5. TRUVADA [Suspect]
     Active Substance: EMTRICITABINE\TENOFOVIR DISOPROXIL FUMARATE
     Dosage: UNK
     Route: 048
     Dates: start: 2004, end: 2007
  6. GENVOYA [Concomitant]
     Active Substance: COBICISTAT\ELVITEGRAVIR\EMTRICITABINE\TENOFOVIR ALAFENAMIDE FUMARATE
  7. TYBOST [Concomitant]
     Active Substance: COBICISTAT
  8. JULUCA [Concomitant]
     Active Substance: DOLUTEGRAVIR SODIUM\RILPIVIRINE HYDROCHLORIDE
  9. LEXIVA [Concomitant]
     Active Substance: FOSAMPRENAVIR CALCIUM
  10. NORVIR [Concomitant]
     Active Substance: RITONAVIR
  11. RETROVIR [Concomitant]
     Active Substance: ZIDOVUDINE
  12. SELZENTRY [Concomitant]
     Active Substance: MARAVIROC
  13. SUSTIVA [Concomitant]
     Active Substance: EFAVIRENZ
  14. SYMFI [Concomitant]
     Active Substance: EFAVIRENZ\LAMIVUDINE\TENOFOVIR DISOPROXIL FUMARATE
  15. TIVICAY [Concomitant]
     Active Substance: DOLUTEGRAVIR SODIUM
  16. TRIUMEQ [Concomitant]
     Active Substance: ABACAVIR SULFATE\DOLUTEGRAVIR SODIUM\LAMIVUDINE
  17. VIRACEPT [Concomitant]
     Active Substance: NELFINAVIR MESYLATE
  18. ZERIT [Concomitant]
     Active Substance: STAVUDINE
  19. FUROSEMIDE [Concomitant]
     Active Substance: FUROSEMIDE
  20. HYDRALAZINE [Concomitant]
     Active Substance: HYDRALAZINE HYDROCHLORIDE
  21. DOXAZOSIN MESYLATE [Concomitant]
     Active Substance: DOXAZOSIN MESYLATE
  22. APTIVUS [Concomitant]
     Active Substance: TIPRANAVIR
  23. EPIVIR [Concomitant]
     Active Substance: LAMIVUDINE
  24. EPZICOM [Concomitant]
     Active Substance: ABACAVIR SULFATE\LAMIVUDINE

REACTIONS (10)
  - Chronic kidney disease [Not Recovered/Not Resolved]
  - Bone density decreased [Unknown]
  - Tooth loss [Not Recovered/Not Resolved]
  - Bone density abnormal [Not Recovered/Not Resolved]
  - Pain [Not Recovered/Not Resolved]
  - Emotional distress [Not Recovered/Not Resolved]
  - Anxiety [Not Recovered/Not Resolved]
  - Anhedonia [Not Recovered/Not Resolved]
  - Back pain [Not Recovered/Not Resolved]
  - Gait disturbance [Not Recovered/Not Resolved]

NARRATIVE: CASE EVENT DATE: 20101201
